FAERS Safety Report 6040766-0 (Version None)
Quarter: 2009Q1

REPORT INFORMATION
  Report Type: 
  Country: None (occurrence: None)
  Receive Date: 20090116
  Receipt Date: 20080521
  Transmission Date: 20090719
  Serious: Yes (Hospitalization)
  Sender: FDA-Public Use
  Company Number: US-BRISTOL-MYERS SQUIBB COMPANY-14200034

PATIENT
  Age: 57 Year
  Sex: Female
  Weight: 86 kg

DRUGS (7)
  1. ABILIFY [Suspect]
     Indication: BIPOLAR DISORDER
     Dates: start: 20080301
  2. OXYCODONE HCL [Concomitant]
  3. PERCOCET [Concomitant]
  4. VOLTAREN [Concomitant]
  5. SIMVASTATIN [Concomitant]
  6. COENZYME Q10 [Concomitant]
  7. FLEXERIL [Concomitant]

REACTIONS (1)
  - MYOCARDIAL ISCHAEMIA [None]
